FAERS Safety Report 21930140 (Version 2)
Quarter: 2023Q1

REPORT INFORMATION
  Report Type: Spontaneous
  Country: BE (occurrence: BE)
  Receive Date: 20230131
  Receipt Date: 20230221
  Transmission Date: 20230418
  Serious: Yes (Other)
  Sender: FDA-Public Use
  Company Number: None

PATIENT
  Age: 56 Year
  Sex: Female

DRUGS (22)
  1. PREDNISOLONE [Suspect]
     Active Substance: PREDNISOLONE
     Indication: Uveitis
     Dosage: 16 MILLIGRAM/DAY
     Route: 065
  2. PREDNISOLONE [Suspect]
     Active Substance: PREDNISOLONE
     Indication: Birdshot chorioretinopathy
     Dosage: UNK, (INCREASED AGAIN TO 16 MG/DAY)
     Route: 065
  3. PREDNISOLONE [Suspect]
     Active Substance: PREDNISOLONE
     Dosage: 7.5 MILLIGRAM/DAY
     Route: 065
  4. PREDNISOLONE [Suspect]
     Active Substance: PREDNISOLONE
     Dosage: 15 MILLIGRAM/DAY
     Route: 065
  5. PREDNISOLONE [Suspect]
     Active Substance: PREDNISOLONE
     Dosage: 4 MILLIGRAM/DAY
     Route: 065
  6. PREDNISOLONE [Suspect]
     Active Substance: PREDNISOLONE
     Dosage: 8 MILLIGRAM/DAY
     Route: 065
  7. PREDNISOLONE [Suspect]
     Active Substance: PREDNISOLONE
     Dosage: UNK, (SLOWLY TAPER PREDNISOLONE OVER A 24-MONTH PERIOD)
     Route: 065
  8. NEORAL [Suspect]
     Active Substance: CYCLOSPORINE
     Indication: Birdshot chorioretinopathy
     Dosage: 200 MILLIGRAM PER DAY
     Route: 065
  9. NEORAL [Suspect]
     Active Substance: CYCLOSPORINE
     Indication: Uveitis
  10. NEORAL [Suspect]
     Active Substance: CYCLOSPORINE
     Indication: Disease recurrence
  11. CELLCEPT [Suspect]
     Active Substance: MYCOPHENOLATE MOFETIL
     Indication: Disease recurrence
     Dosage: 2 GRAM PER DAY
     Route: 065
  12. CELLCEPT [Suspect]
     Active Substance: MYCOPHENOLATE MOFETIL
     Indication: Uveitis
  13. CELLCEPT [Suspect]
     Active Substance: MYCOPHENOLATE MOFETIL
     Indication: Birdshot chorioretinopathy
  14. HUMIRA [Suspect]
     Active Substance: ADALIMUMAB
     Indication: Uveitis
     Dosage: 80 MILLIGRAM (80 MG AT WEEK 0, THEN 40 MG AT WEEK 1, THEN 40 MG EVERY 2 WEEKS)
     Route: 058
  15. HUMIRA [Suspect]
     Active Substance: ADALIMUMAB
     Indication: Birdshot chorioretinopathy
     Dosage: 40 MILLIGRAM (80 MG AT WEEK 0, THEN 40 MG AT WEEK 1, THEN 40 MG EVERY 2 WEEKS)
     Route: 058
  16. HUMIRA [Suspect]
     Active Substance: ADALIMUMAB
     Dosage: 40 MILLIGRAM PER 2 WEEKS (80 MG AT WEEK 0, THEN 40 MG AT WEEK 1, THEN 40 MG EVERY 2 WEEKS)
     Route: 058
  17. IMURAN [Suspect]
     Active Substance: AZATHIOPRINE
     Indication: Uveitis
     Dosage: 150 MILLIGRAM PER DAY
     Route: 065
  18. IMURAN [Suspect]
     Active Substance: AZATHIOPRINE
     Indication: Birdshot chorioretinopathy
  19. RAPAMUNE [Suspect]
     Active Substance: SIROLIMUS
     Indication: Birdshot chorioretinopathy
     Dosage: 2 MILLIGRAM/DAY
     Route: 065
  20. RAPAMUNE [Suspect]
     Active Substance: SIROLIMUS
     Indication: Uveitis
  21. METHYLPREDNISOLONE [Suspect]
     Active Substance: METHYLPREDNISOLONE
     Indication: Uveitis
     Dosage: 64 MILLIGRAM PER DAY
     Route: 065
  22. METHYLPREDNISOLONE [Suspect]
     Active Substance: METHYLPREDNISOLONE
     Indication: Birdshot chorioretinopathy
     Dosage: UNK, (TAPERED OVER 3 MONTHS)
     Route: 065

REACTIONS (4)
  - Metastases to bone [Unknown]
  - Metastases to pleura [Unknown]
  - Metastases to liver [Unknown]
  - Lung squamous cell carcinoma metastatic [Recovered/Resolved]

NARRATIVE: CASE EVENT DATE: 20210401
